FAERS Safety Report 9845189 (Version 1)
Quarter: 2014Q1

REPORT INFORMATION
  Report Type: Spontaneous
  Country: US (occurrence: US)
  Receive Date: 20140127
  Receipt Date: 20140127
  Transmission Date: 20141002
  Serious: Yes (Hospitalization)
  Sender: FDA-Public Use
  Company Number: US-B.I. PHARMACEUTICALS,INC./RIDGEFIELD-2014-BI-02521GD

PATIENT
  Age: 33 Year
  Sex: Female
  Weight: 78 kg

DRUGS (5)
  1. PRADAXA [Suspect]
     Indication: ATRIAL FIBRILLATION
     Dosage: 300 MG
     Route: 048
  2. FUROSEMIDE [Concomitant]
     Dosage: 40 MG
     Route: 048
  3. CARVEDILOL [Concomitant]
     Dosage: 25 MG
     Route: 048
  4. POTASSIUM CHLORIDE [Concomitant]
     Dosage: 20 MEQ
     Route: 048
  5. LISINOPRIL [Concomitant]
     Dosage: 5 MG
     Route: 048

REACTIONS (5)
  - Menorrhagia [Recovered/Resolved]
  - Dizziness [Recovered/Resolved]
  - Fatigue [Recovered/Resolved]
  - Asthenia [Recovered/Resolved]
  - Anaemia [Not Recovered/Not Resolved]
